FAERS Safety Report 6930241-0 (Version None)
Quarter: 2010Q3

REPORT INFORMATION
  Report Type: 
  Country: None (occurrence: None)
  Receive Date: 20100817
  Receipt Date: 20100817
  Transmission Date: 20110219
  Serious: Yes (Other)
  Sender: FDA-Public Use
  Company Number: None

PATIENT
  Age: 79 Year
  Sex: Male
  Weight: 84.369 kg

DRUGS (1)
  1. ZEMPLAR [Suspect]
     Indication: BLOOD TEST
     Dosage: 1 A - DAY
     Dates: start: 20100712, end: 20100722

REACTIONS (5)
  - ABDOMINAL DISTENSION [None]
  - ABDOMINAL PAIN [None]
  - DIZZINESS [None]
  - THIRST [None]
  - VOMITING [None]
